FAERS Safety Report 20775959 (Version 2)
Quarter: 2022Q3

REPORT INFORMATION
  Report Type: Spontaneous
  Country: CA (occurrence: CA)
  Receive Date: 20220502
  Receipt Date: 20220708
  Transmission Date: 20221026
  Serious: Yes (Other)
  Sender: FDA-Public Use
  Company Number: CA-NOVARTISPH-NVSC2022CA099745

PATIENT
  Age: 34 Year
  Sex: Female

DRUGS (3)
  1. GENTAMICIN [Suspect]
     Active Substance: GENTAMICIN
     Indication: Premature labour
     Dosage: UNK
     Route: 042
  2. AMPICILLIN [Suspect]
     Active Substance: AMPICILLIN
     Indication: Premature labour
     Dosage: UNK
     Route: 042
  3. BETAMETHASONE [Suspect]
     Active Substance: BETAMETHASONE
     Indication: Premature labour
     Dosage: UNK, ONCE/SINGLE
     Route: 030

REACTIONS (4)
  - Premature delivery [Unknown]
  - Product use in unapproved indication [Unknown]
  - Delivery [Unknown]
  - Maternal exposure during pregnancy [Unknown]
